FAERS Safety Report 13672512 (Version 1)
Quarter: 2017Q2

REPORT INFORMATION
  Report Type: Other
  Country: IT (occurrence: IT)
  Receive Date: 20170621
  Receipt Date: 20170621
  Transmission Date: 20170830
  Serious: Yes (Hospitalization)
  Sender: FDA-Public Use
  Company Number: IT-APOTEX-2017AP013112

PATIENT
  Age: 1 Year
  Sex: Male
  Weight: 12 kg

DRUGS (1)
  1. ZOLPIDEM DOC GENERICI [Suspect]
     Active Substance: ZOLPIDEM TARTRATE
     Indication: ACCIDENTAL EXPOSURE TO PRODUCT
     Dosage: 10 MG, TOTAL
     Route: 048
     Dates: start: 20170521, end: 20170521

REACTIONS (2)
  - Accidental exposure to product by child [Unknown]
  - Somnolence [Unknown]

NARRATIVE: CASE EVENT DATE: 20170521
